FAERS Safety Report 5046026-9 (Version None)
Quarter: 2006Q2

REPORT INFORMATION
  Report Type: 
  Country: None (occurrence: None)
  Receive Date: 20060629
  Receipt Date: 20060517
  Transmission Date: 20061013
  Serious: Yes (Disabling)
  Sender: FDA-Public Use
  Company Number: 2006063710

PATIENT
  Age: 78 Year
  Sex: Male
  Weight: 73.0291 kg

DRUGS (2)
  1. DETROL LA [Suspect]
     Indication: DYSURIA
     Dosage: (4 MG), ORAL
     Route: 048
     Dates: start: 20060512, end: 20060513
  2. BACTRIM DS [Concomitant]

REACTIONS (12)
  - ABDOMINAL DISCOMFORT [None]
  - ANOREXIA [None]
  - ASTHENIA [None]
  - CHILLS [None]
  - DIFFICULTY IN WALKING [None]
  - DRUG INEFFECTIVE [None]
  - FATIGUE [None]
  - FEELING HOT [None]
  - HEADACHE [None]
  - INFLUENZA LIKE ILLNESS [None]
  - NAUSEA [None]
  - TREMOR [None]
